FAERS Safety Report 9530401 (Version 1)
Quarter: 2013Q3

REPORT INFORMATION
  Report Type: Spontaneous
  Country: US (occurrence: US)
  Receive Date: 20130918
  Receipt Date: 20130918
  Transmission Date: 20140515
  Serious: No
  Sender: FDA-Public Use
  Company Number: US-009507513-1309USA005524

PATIENT
  Sex: Male

DRUGS (1)
  1. DULERA [Suspect]
     Dosage: UNK, DULERA INHALER(EA)
     Route: 048

REACTIONS (3)
  - Nausea [Unknown]
  - Choking [Unknown]
  - Feeling abnormal [Unknown]
